FAERS Safety Report 25590840 (Version 1)
Quarter: 2025Q3

REPORT INFORMATION
  Report Type: Spontaneous
  Country: JP (occurrence: JP)
  Receive Date: 20250722
  Receipt Date: 20250722
  Transmission Date: 20251021
  Serious: Yes (Death, Hospitalization, Other)
  Sender: ALEXION PHARMACEUTICALS
  Company Number: JP-ASTRAZENECA-202507JPN013138JP

PATIENT
  Age: 44 Year
  Sex: Female

DRUGS (4)
  1. TRUQAP [Suspect]
     Active Substance: CAPIVASERTIB
     Indication: Breast cancer
     Route: 065
  2. TRUQAP [Suspect]
     Active Substance: CAPIVASERTIB
     Route: 065
  3. FASLODEX [Suspect]
     Active Substance: FULVESTRANT
     Indication: Breast cancer
     Route: 065
  4. FASLODEX [Suspect]
     Active Substance: FULVESTRANT

REACTIONS (5)
  - Hepatic failure [Fatal]
  - Cholangitis [Fatal]
  - Diarrhoea [Recovered/Resolved]
  - Malignant neoplasm progression [Unknown]
  - Metastases to liver [Unknown]
